FAERS Safety Report 22106154 (Version 1)
Quarter: 2023Q1

REPORT INFORMATION
  Report Type: Spontaneous
  Country: US (occurrence: US)
  Receive Date: 20230317
  Receipt Date: 20230317
  Transmission Date: 20230418
  Serious: No
  Sender: FDA-Public Use
  Company Number: US-SA-SAC20230308000583

PATIENT
  Age: 1 Year
  Sex: Female
  Weight: 11.76 kg

DRUGS (1)
  1. EFLORNITHINE HYDROCHLORIDE [Suspect]
     Active Substance: EFLORNITHINE HYDROCHLORIDE
     Indication: Hypotonia
     Dosage: 4.9 ML, BID
     Route: 048
     Dates: start: 20220301

REACTIONS (4)
  - Malaise [Recovered/Resolved]
  - Eye infection [Recovered/Resolved]
  - Joint dislocation [Recovered/Resolved]
  - Pyrexia [Recovered/Resolved]

NARRATIVE: CASE EVENT DATE: 20230217
